FAERS Safety Report 9718821 (Version 1)
Quarter: 2013Q4

REPORT INFORMATION
  Report Type: Spontaneous
  Country: US (occurrence: None)
  Receive Date: 20131125
  Receipt Date: 20131125
  Transmission Date: 20140711
  Serious: Yes (Hospitalization)
  Sender: FDA-Public Use
  Company Number: FK201305075

PATIENT
  Age: 78 Year
  Sex: Male

DRUGS (3)
  1. METHOTREXATE (MANUFACTURER UNKNOWN) (METHOTREXATE) (METHOTREXATE) [Suspect]
     Indication: OSTEOSARCOMA
  2. CARBOPLATIN (CARBOPLATIN) [Concomitant]
  3. DOXORUBICIN (DOXORUBICIN) [Concomitant]

REACTIONS (1)
  - Renal failure acute [None]
